FAERS Safety Report 9262831 (Version 2)
Quarter: 2013Q2

REPORT INFORMATION
  Report Type: Spontaneous
  Country: US (occurrence: None)
  Receive Date: 20130423
  Receipt Date: 20130425
  Transmission Date: 20140414
  Serious: Yes (Hospitalization)
  Sender: FDA-Public Use
  Company Number: 2013035499

PATIENT
  Age: 51 Year
  Sex: Female
  Weight: 69 kg

DRUGS (3)
  1. HIZENTRA [Suspect]
  2. HORMONE THERAPY [Suspect]
     Route: 058
  3. ORAL CONTRACEPTIVE [Suspect]

REACTIONS (3)
  - Thrombosis [None]
  - Pulmonary thrombosis [None]
  - Pulmonary embolism [None]
